FAERS Safety Report 10156970 (Version 1)
Quarter: 2014Q2

REPORT INFORMATION
  Report Type: Spontaneous
  Country: US (occurrence: US)
  Receive Date: 20140507
  Receipt Date: 20140507
  Transmission Date: 20141212
  Serious: No
  Sender: FDA-Public Use
  Company Number: US-TEVA-479740USA

PATIENT
  Age: 25 Year
  Sex: Female
  Weight: 77.18 kg

DRUGS (6)
  1. PARAGARD 380A [Suspect]
     Indication: CONTRACEPTION
     Route: 015
     Dates: start: 20131223, end: 20140418
  2. ADDERALL [Concomitant]
     Indication: ATTENTION DEFICIT/HYPERACTIVITY DISORDER
  3. PROZAC [Concomitant]
     Indication: DEPRESSION
  4. PROZAC [Concomitant]
     Indication: ANXIETY
  5. WELLBUTRIN [Concomitant]
     Indication: ATTENTION DEFICIT/HYPERACTIVITY DISORDER
  6. PROPANOLOL [Concomitant]
     Indication: ANXIETY

REACTIONS (5)
  - Candida infection [Recovered/Resolved]
  - Stomatitis [Recovered/Resolved]
  - Blister [Recovered/Resolved]
  - Mouth ulceration [Recovered/Resolved]
  - Menstruation irregular [Recovered/Resolved]
